FAERS Safety Report 8602924-8 (Version None)
Quarter: 2012Q3

REPORT INFORMATION
  Report Type: 
  Country: None (occurrence: None)
  Receive Date: 20120817
  Receipt Date: 20120816
  Transmission Date: 20120928
  Serious: Yes (Other)
  Sender: FDA-Public Use
  Company Number: US-GLAXOSMITHKLINE-A0989871A

PATIENT
  Age: 44 Year
  Sex: Female

DRUGS (1)
  1. ALLI [Suspect]
     Indication: WEIGHT LOSS DIET
     Route: 048
     Dates: start: 20120601

REACTIONS (5)
  - CONSTIPATION [None]
  - ABDOMINAL PAIN [None]
  - ABNORMAL FAECES [None]
  - HAEMATOCHEZIA [None]
  - ABDOMINAL DISTENSION [None]
